FAERS Safety Report 5404939-X (Version None)
Quarter: 2007Q3

REPORT INFORMATION
  Report Type: 
  Country: None (occurrence: None)
  Receive Date: 20070803
  Receipt Date: 20070724
  Transmission Date: 20080115
  Serious: Yes (Hospitalization, Disabling)
  Sender: FDA-Public Use
  Company Number: US-JNJFOC-20070501368

PATIENT
  Sex: Male
  Weight: 74 kg

DRUGS (7)
  1. REMICADE [Suspect]
     Route: 042
  2. REMICADE [Suspect]
     Route: 042
  3. REMICADE [Suspect]
     Indication: PSORIATIC ARTHROPATHY
     Route: 042
  4. METHOTREXATE [Concomitant]
     Indication: PSORIATIC ARTHROPATHY
     Route: 058
  5. PREDNISONE [Concomitant]
     Indication: PSORIATIC ARTHROPATHY
  6. GABAPENTIN [Concomitant]
     Indication: PAIN
  7. SERTRALINE [Concomitant]
     Indication: ANXIETY

REACTIONS (3)
  - MUSCULAR WEAKNESS [None]
  - NEURALGIA [None]
  - PARAESTHESIA [None]
